FAERS Safety Report 6979332-9 (Version None)
Quarter: 2010Q3

REPORT INFORMATION
  Report Type: 
  Country: None (occurrence: None)
  Receive Date: 20100910
  Receipt Date: 20100910
  Transmission Date: 20110219
  Serious: Yes (Hospitalization)
  Sender: FDA-Public Use
  Company Number: None

PATIENT
  Age: 72 Year
  Sex: Female
  Weight: 69.8539 kg

DRUGS (2)
  1. AMOXICILLIN [Suspect]
     Indication: LYMPHADENOPATHY
     Dates: start: 20100301
  2. AMOXICILLIN [Suspect]
     Indication: OROPHARYNGEAL PAIN
     Dates: start: 20100301

REACTIONS (8)
  - ARTHRALGIA [None]
  - FALL [None]
  - HYPERSENSITIVITY [None]
  - JOINT SWELLING [None]
  - MIDDLE INSOMNIA [None]
  - ORAL PUSTULE [None]
  - RASH PUSTULAR [None]
  - VIRAL INFECTION [None]
